FAERS Safety Report 8144898-2 (Version None)
Quarter: 2012Q1

REPORT INFORMATION
  Report Type: 
  Country: None (occurrence: None)
  Receive Date: 20120217
  Receipt Date: 20120207
  Transmission Date: 20120608
  Serious: Yes (Hospitalization)
  Sender: FDA-Public Use
  Company Number: BR-VIIV HEALTHCARE LIMITED-B0782362A

PATIENT
  Age: 29 Year
  Sex: Male

DRUGS (3)
  1. ZIDOVUDINE [Suspect]
     Indication: HIV INFECTION
     Route: 065
  2. LAMIVUDINE (EPIVIR HBV) [Suspect]
     Indication: HIV INFECTION
     Route: 065
  3. EFAVIRENZ [Suspect]
     Indication: HIV INFECTION
     Route: 065

REACTIONS (11)
  - BRONCHIECTASIS [None]
  - PULMONARY ARTERIAL HYPERTENSION [None]
  - PRODUCTIVE COUGH [None]
  - DYSPNOEA [None]
  - TOTAL LUNG CAPACITY DECREASED [None]
  - LYMPHADENOPATHY [None]
  - PYREXIA [None]
  - PLEURAL FIBROSIS [None]
  - PULMONARY SARCOIDOSIS [None]
  - IMMUNE RECONSTITUTION SYNDROME [None]
  - WEIGHT DECREASED [None]
